FAERS Safety Report 5165591-4 (Version None)
Quarter: 2006Q4

REPORT INFORMATION
  Report Type: 
  Country: None (occurrence: None)
  Receive Date: 20061206
  Receipt Date: 20061201
  Transmission Date: 20070319
  Serious: Yes (Other)
  Sender: FDA-Public Use
  Company Number: FR-GLAXOSMITHKLINE-B0449168A

PATIENT
  Age: 54 Year
  Sex: Female

DRUGS (2)
  1. ZELITREX [Suspect]
     Indication: HEPATITIS VIRAL
     Dosage: 500MG PER DAY
     Route: 048
     Dates: start: 20041101, end: 20061101
  2. CIRKAN [Concomitant]
     Indication: CARDIOVASCULAR DISORDER
     Route: 048

REACTIONS (7)
  - ANOREXIA [None]
  - DIARRHOEA [None]
  - FAECES PALE [None]
  - FATIGUE [None]
  - HEPATITIS [None]
  - TRANSAMINASES INCREASED [None]
  - WEIGHT DECREASED [None]
